FAERS Safety Report 15521867 (Version 1)
Quarter: 2018Q4

REPORT INFORMATION
  Report Type: Spontaneous
  Country: US (occurrence: US)
  Receive Date: 20181018
  Receipt Date: 20181018
  Transmission Date: 20190205
  Serious: Yes (Disabling, Other)
  Sender: FDA-Public Use
  Company Number: None

PATIENT

DRUGS (1)
  1. BUPIVACAINE SPINAL [Suspect]
     Active Substance: BUPIVACAINE

REACTIONS (3)
  - Drug effect decreased [None]
  - Product complaint [None]
  - Recalled product [None]

NARRATIVE: CASE EVENT DATE: 20181015
